FAERS Safety Report 10960727 (Version 1)
Quarter: 2015Q1

REPORT INFORMATION
  Report Type: Spontaneous
  Country: US (occurrence: US)
  Receive Date: 20150327
  Receipt Date: 20150327
  Transmission Date: 20150721
  Serious: No
  Sender: FDA-Public Use
  Company Number: US-AMGEN-USASP2015026423

PATIENT
  Age: 17 Year
  Sex: Female

DRUGS (1)
  1. ENBREL [Suspect]
     Active Substance: ETANERCEPT
     Indication: PSORIASIS
     Dosage: 50 MG, 2 TIMES/WK
     Route: 065
     Dates: start: 20150201

REACTIONS (10)
  - Menstrual disorder [Not Recovered/Not Resolved]
  - Fatigue [Not Recovered/Not Resolved]
  - Sinusitis [Recovered/Resolved]
  - Psoriasis [Not Recovered/Not Resolved]
  - Migraine [Not Recovered/Not Resolved]
  - Streptococcal infection [Recovered/Resolved]
  - Nasal congestion [Recovered/Resolved]
  - Headache [Recovered/Resolved]
  - Pharyngeal erythema [Recovered/Resolved]
  - Off label use [Unknown]

NARRATIVE: CASE EVENT DATE: 2015
